FAERS Safety Report 5932933-9 (Version None)
Quarter: 2008Q4

REPORT INFORMATION
  Report Type: 
  Country: None (occurrence: None)
  Receive Date: 20081028
  Receipt Date: 20081014
  Transmission Date: 20090506
  Serious: Yes (Death, Hospitalization)
  Sender: FDA-Public Use
  Company Number: ES-MERCK-0810USA00089

PATIENT
  Age: 55 Year
  Sex: Male

DRUGS (6)
  1. HYDRODIURIL [Suspect]
     Indication: HYPERTENSIVE CARDIOMYOPATHY
     Route: 048
  2. LITHIUM SULFATE [Suspect]
     Indication: AFFECTIVE DISORDER
     Route: 065
  3. LITHIUM SULFATE [Suspect]
     Indication: MANIA
     Route: 065
  4. ATORVASTATIN [Concomitant]
     Indication: HYPERCHOLESTEROLAEMIA
     Route: 065
  5. QUINAPRIL HYDROCHLORIDE [Concomitant]
     Indication: HYPERTENSIVE CARDIOMYOPATHY
     Route: 065
  6. DOXAZOSIN MESYLATE [Concomitant]
     Indication: PROSTATIC DISORDER
     Route: 065

REACTIONS (8)
  - AFFECTIVE DISORDER [None]
  - ATAXIA [None]
  - DEMENTIA [None]
  - DISSOCIATION [None]
  - DYSARTHRIA [None]
  - DYSPHASIA [None]
  - RESPIRATORY DISORDER [None]
  - THERAPEUTIC AGENT TOXICITY [None]
